FAERS Safety Report 24978617 (Version 2)
Quarter: 2025Q1

REPORT INFORMATION
  Report Type: Spontaneous
  Country: US (occurrence: US)
  Receive Date: 20250218
  Receipt Date: 20250220
  Transmission Date: 20250408
  Serious: Yes (Hospitalization)
  Sender: ROCHE
  Company Number: US-ROCHE-10000206430

PATIENT
  Age: 65 Year
  Sex: Female

DRUGS (2)
  1. ESBRIET [Suspect]
     Active Substance: PIRFENIDONE
     Indication: Pulmonary arterial hypertension
     Route: 048
     Dates: start: 202410
  2. TYVASO DPI [Concomitant]
     Active Substance: TREPROSTINIL

REACTIONS (3)
  - Fluid retention [Unknown]
  - Fatigue [Unknown]
  - Off label use [Unknown]
